FAERS Safety Report 4542131-1 (Version None)
Quarter: 2004Q4

REPORT INFORMATION
  Report Type: 
  Country: None (occurrence: None)
  Receive Date: 20041227
  Receipt Date: 20041213
  Transmission Date: 20050328
  Serious: Yes (Hospitalization)
  Sender: FDA-Public Use
  Company Number: MK200412-0299-1

PATIENT
  Age: 41 Year
  Sex: Male

DRUGS (4)
  1. ANAFRANIL [Suspect]
     Indication: DEPRESSION
     Dates: start: 20041024, end: 20041027
  2. PERINDOPRIL [Suspect]
     Dates: start: 20041024, end: 20041027
  3. CITALOPRAM HYDROBROMIDE [Concomitant]
  4. CLOPIDOGREL [Concomitant]

REACTIONS (2)
  - ALANINE AMINOTRANSFERASE INCREASED [None]
  - BLOOD BILIRUBIN INCREASED [None]
